FAERS Safety Report 19893983 (Version 1)
Quarter: 2021Q3

REPORT INFORMATION
  Report Type: Report from Study
  Country: IN (occurrence: IN)
  Receive Date: 20210929
  Receipt Date: 20210929
  Transmission Date: 20211014
  Serious: Yes (Death)
  Sender: FDA-Public Use
  Company Number: IN-BRISTOL-MYERS SQUIBB COMPANY-BMS-2021-097764

PATIENT
  Age: 33 Year
  Sex: Male
  Weight: 49 kg

DRUGS (1)
  1. NIVOLUMAB [Suspect]
     Active Substance: NIVOLUMAB
     Indication: SQUAMOUS CELL CARCINOMA OF HEAD AND NECK
     Dosage: 147.0 MILLIGRAM, Q2WK
     Route: 042
     Dates: start: 20210807, end: 20210811

REACTIONS (2)
  - Platelet count decreased [Fatal]
  - Epistaxis [Fatal]

NARRATIVE: CASE EVENT DATE: 202108
